FAERS Safety Report 8385075-X (Version None)
Quarter: 2012Q2

REPORT INFORMATION
  Report Type: 
  Country: None (occurrence: None)
  Receive Date: 20120524
  Receipt Date: 20120510
  Transmission Date: 20120825
  Serious: Yes (Other)
  Sender: FDA-Public Use
  Company Number: CHPA2012US010924

PATIENT
  Age: 71 Year
  Sex: Female

DRUGS (3)
  1. EXCEDRIN PM TABLETS [Suspect]
     Indication: PAIN
     Dosage: UNK DF, UNK
     Route: 048
  2. EXCEDRIN EXTRA STRENGTH TABLETS [Suspect]
     Indication: PAIN
     Dosage: UNK DF, UNK
     Route: 048
  3. EXCEDRIN BACK \+ BODY CAPLETS [Suspect]
     Indication: PAIN
     Dosage: UNK DF, UNK
     Route: 048

REACTIONS (2)
  - GASTRIC ULCER [None]
  - OFF LABEL USE [None]
